FAERS Safety Report 9870022 (Version 2)
Quarter: 2014Q1

REPORT INFORMATION
  Report Type: Spontaneous
  Country: US (occurrence: US)
  Receive Date: 20140205
  Receipt Date: 20140205
  Transmission Date: 20141002
  Serious: No
  Sender: FDA-Public Use
  Company Number: US-PFIZER INC-2011271680

PATIENT
  Sex: Female

DRUGS (14)
  1. PENICILLIN G PROCAINE [Suspect]
     Dosage: UNK
  2. VANCOMYCIN HCL [Suspect]
     Dosage: UNK
  3. LEVAQUIN [Suspect]
     Dosage: UNK
  4. ULTRAM [Suspect]
     Dosage: UNK
  5. PROTONIX [Concomitant]
     Dosage: 40 MG, UNK
  6. ARIMIDEX [Concomitant]
     Dosage: 1 MG, 1X/DAY
  7. CRESTOR [Concomitant]
     Dosage: 5 MG, DAILY
  8. LOPRESSOR [Concomitant]
     Dosage: 50 MG, DAILY
  9. SINGULAIR [Concomitant]
     Dosage: 10 MG, DAILY
  10. ASPIRIN [Concomitant]
     Dosage: 81 MG, DAILY
  11. PLAVIX [Concomitant]
     Dosage: 75 MG, DAILY
  12. AZOR [Concomitant]
     Dosage: 10MG/40MG, DAILY
  13. SYMBICORT [Concomitant]
     Dosage: 160/4.5; 2 PUFFS DAILY (AS NEEDED)
  14. TYLENOL [Concomitant]
     Dosage: OCCASIONALLY

REACTIONS (1)
  - Drug hypersensitivity [Unknown]
